FAERS Safety Report 6558436-9 (Version None)
Quarter: 2010Q1

REPORT INFORMATION
  Report Type: 
  Country: None (occurrence: None)
  Receive Date: 20100126
  Receipt Date: 20100113
  Transmission Date: 20100710
  Serious: Yes (Other)
  Sender: FDA-Public Use
  Company Number: 237858K09USA

PATIENT
  Age: 46 Year
  Sex: Female
  Weight: 156 kg

DRUGS (11)
  1. REBIF [Suspect]
     Indication: MULTIPLE SCLEROSIS
     Dosage: 44 MCG, 3 IN 1 WEEKS, SUBCUTANEOUS
     Route: 058
     Dates: start: 20061106, end: 20090401
  2. LIPITOR (ATROVASTATIN /01326101/) [Concomitant]
  3. TOPAMAX [Concomitant]
  4. PROVIGIL [Concomitant]
  5. PAROXETINE HCL [Concomitant]
  6. UNSPECIFIED ANTIDEPRESSANT (ANTIDEPRESSANTS) [Concomitant]
  7. XANAX [Concomitant]
  8. LISINOPRIL [Concomitant]
  9. LASIX (FUROSEMIDE /00032601/) [Concomitant]
  10. POTASSIUM CHLORIDE [Concomitant]
  11. MOBIC [Concomitant]

REACTIONS (4)
  - CHOLELITHIASIS [None]
  - DIABETES MELLITUS [None]
  - HEPATIC STEATOSIS [None]
  - HYPERTENSION [None]
